FAERS Safety Report 7927159-3 (Version None)
Quarter: 2011Q4

REPORT INFORMATION
  Report Type: 
  Country: None (occurrence: None)
  Receive Date: 20111116
  Receipt Date: 20111102
  Transmission Date: 20120403
  Serious: Yes (Death)
  Sender: FDA-Public Use
  Company Number: 020558

PATIENT
  Age: 90 Year
  Sex: Male
  Weight: 51 kg

DRUGS (7)
  1. MACUGEN [Suspect]
     Indication: AGE-RELATED MACULAR DEGENERATION
     Dosage: 0.3 MG, INTRAOCULAR
     Route: 031
     Dates: start: 20100120
  2. LEVOFLOXACIN [Concomitant]
  3. HUMALIN (INSULIN) [Concomitant]
  4. URIEF (SILODOSIN) [Concomitant]
  5. BROMFENAC SODIUM (BROMFENAC SODIUM) [Concomitant]
  6. FULCALIQ (AMINO ACIDS NOS, ELECTROLYTES NOS, GLUCOSE, VITAMINS NOS) [Concomitant]
  7. XYLOCAINE [Concomitant]

REACTIONS (2)
  - BLOOD PRESSURE SYSTOLIC INCREASED [None]
  - CEREBRAL INFARCTION [None]
